FAERS Safety Report 5809165-8 (Version None)
Quarter: 2008Q3

REPORT INFORMATION
  Report Type: 
  Country: None (occurrence: None)
  Receive Date: 20080714
  Receipt Date: 20080702
  Transmission Date: 20090109
  Serious: Yes (Other)
  Sender: FDA-Public Use
  Company Number: JP-PFIZER INC-2008050918

PATIENT
  Sex: Female
  Weight: 8 kg

DRUGS (4)
  1. ZITHROMAX [Suspect]
     Indication: BRONCHITIS
     Dosage: DAILY DOSE:800MG-FREQ:FREQUENCY: QD
     Route: 048
     Dates: start: 20080507, end: 20080509
  2. CEFDINIR [Suspect]
     Indication: BRONCHITIS
     Route: 048
     Dates: start: 20080509, end: 20080512
  3. CEFOTIAM HYDROCHLORIDE [Suspect]
     Indication: BRONCHITIS
     Route: 042
     Dates: start: 20080512, end: 20080516
  4. CEFOTIAM HYDROCHLORIDE [Suspect]
     Dates: start: 20080524, end: 20080525

REACTIONS (3)
  - ERYTHEMA MULTIFORME [None]
  - ORAL MUCOSA EROSION [None]
  - VULVAR EROSION [None]
